FAERS Safety Report 9787154 (Version 2)
Quarter: 2014Q1

REPORT INFORMATION
  Report Type: Spontaneous
  Country: US (occurrence: US)
  Receive Date: 20131228
  Receipt Date: 20140325
  Transmission Date: 20141002
  Serious: No
  Sender: FDA-Public Use
  Company Number: US-TEVA-453099USA

PATIENT
  Sex: Male
  Weight: 86.26 kg

DRUGS (1)
  1. CLARAVIS [Suspect]
     Dosage: 30 MILLIGRAM DAILY;
     Route: 048
     Dates: start: 20130913, end: 20131021

REACTIONS (1)
  - Back pain [Unknown]
